FAERS Safety Report 8407555-0 (Version None)
Quarter: 2012Q2

REPORT INFORMATION
  Report Type: 
  Country: None (occurrence: None)
  Receive Date: 20120604
  Receipt Date: 20120529
  Transmission Date: 20120825
  Serious: Yes (Death, Other)
  Sender: FDA-Public Use
  Company Number: FR-ASTRAZENECA-2012SE24336

PATIENT
  Age: 12392 Day
  Sex: Female

DRUGS (23)
  1. ZYPREXA [Concomitant]
     Route: 048
     Dates: start: 20091224, end: 20120411
  2. MIANSERINE SANDOZ [Concomitant]
     Route: 048
     Dates: start: 20120411
  3. TERCIAN [Concomitant]
     Route: 048
     Dates: end: 20120406
  4. TERCIAN [Concomitant]
     Route: 048
     Dates: start: 20120411
  5. PARKINANE LP [Concomitant]
     Route: 048
     Dates: start: 20091226, end: 20120411
  6. VOLTAREN [Concomitant]
     Route: 003
     Dates: start: 20091225, end: 20120411
  7. ABILIFY [Concomitant]
     Route: 048
     Dates: start: 20120411
  8. IMOVANE [Concomitant]
     Route: 048
     Dates: start: 20120406
  9. QUETIAPINE FUMARATE [Suspect]
     Indication: BIPOLAR I DISORDER
     Route: 048
     Dates: start: 20120301, end: 20120406
  10. PRAZEPAM [Concomitant]
     Dosage: 15/10 MG/ML 10 DROPS THREE TIMES PER DAY
     Route: 048
     Dates: start: 20091225
  11. QUETIAPINE FUMARATE [Suspect]
     Route: 048
     Dates: start: 20120411
  12. PROZAC [Suspect]
     Route: 048
     Dates: start: 20120406, end: 20120411
  13. ABILIFY [Concomitant]
     Route: 048
     Dates: end: 20120406
  14. PRAZEPAM [Concomitant]
     Route: 048
     Dates: end: 20120406
  15. PRAZEPAM [Concomitant]
     Route: 048
     Dates: start: 20120411
  16. ACETAMINOPHEN [Concomitant]
     Route: 048
     Dates: start: 20091225, end: 20120411
  17. HEPT A MYL [Concomitant]
     Route: 048
     Dates: start: 20091226, end: 20120411
  18. EFFEXOR XR [Concomitant]
     Route: 048
     Dates: end: 20120406
  19. XANAX [Concomitant]
     Route: 048
     Dates: start: 20120406, end: 20120411
  20. DEPAKOTE [Concomitant]
     Route: 048
     Dates: start: 20091226, end: 20120411
  21. CHLORPROMAZINE HCL [Concomitant]
     Dates: start: 20091228, end: 20120411
  22. CHLORPROMAZINE HCL [Concomitant]
     Dates: start: 20091228, end: 20120411
  23. VASOBRAL [Concomitant]
     Dates: start: 20091224, end: 20120411

REACTIONS (6)
  - LACK OF SPONTANEOUS SPEECH [None]
  - THINKING ABNORMAL [None]
  - DISSOCIATION [None]
  - COMPLETED SUICIDE [None]
  - SUICIDAL IDEATION [None]
  - EMOTIONAL DISTRESS [None]
